FAERS Safety Report 5811472-X (Version None)
Quarter: 2008Q3

REPORT INFORMATION
  Report Type: 
  Country: None (occurrence: None)
  Receive Date: 20080716
  Receipt Date: 20080714
  Transmission Date: 20090109
  Serious: Yes (Other)
  Sender: FDA-Public Use
  Company Number: US-WYE-H04630808

PATIENT
  Sex: Female

DRUGS (2)
  1. ROBITUSSIN DM [Suspect]
     Indication: NASOPHARYNGITIS
     Dosage: UNKNOWN, DAILY
     Route: 048
  2. ALENDRONATE SODIUM [Concomitant]

REACTIONS (3)
  - COUGH [None]
  - DEPENDENCE [None]
  - THERAPEUTIC RESPONSE UNEXPECTED [None]
